FAERS Safety Report 4672919-8 (Version None)
Quarter: 2005Q2

REPORT INFORMATION
  Report Type: 
  Country: None (occurrence: None)
  Receive Date: 20050523
  Receipt Date: 20050509
  Transmission Date: 20051028
  Serious: Yes (Other)
  Sender: FDA-Public Use
  Company Number: 2005072830

PATIENT
  Age: 69 Year
  Sex: Female
  Weight: 70.3075 kg

DRUGS (2)
  1. DAYPRO [Suspect]
     Indication: ILL-DEFINED DISORDER
  2. DOXYCYCLINE [Suspect]
     Indication: ILL-DEFINED DISORDER

REACTIONS (4)
  - CONDITION AGGRAVATED [None]
  - DRUG HYPERSENSITIVITY [None]
  - HYPERTONIC BLADDER [None]
  - TREMOR [None]
